FAERS Safety Report 4699866-X (Version None)
Quarter: 2005Q2

REPORT INFORMATION
  Report Type: 
  Country: None (occurrence: None)
  Receive Date: 20050623
  Receipt Date: 20050608
  Transmission Date: 20051028
  Serious: Yes (Other)
  Sender: FDA-Public Use
  Company Number: 2005-DE-02149GD

PATIENT
  Sex: 0

DRUGS (1)
  1. AZATHIOPRINE [Suspect]
     Indication: ARTHROPATHY

REACTIONS (1)
  - WHIPPLE'S DISEASE [None]
